FAERS Safety Report 11147962 (Version 2)
Quarter: 2015Q3

REPORT INFORMATION
  Report Type: Spontaneous
  Country: FR (occurrence: FR)
  Receive Date: 20150529
  Receipt Date: 20150724
  Transmission Date: 20151125
  Serious: Yes (Hospitalization)
  Sender: FDA-Public Use
  Company Number: FR-009507513-1505FRA015057

PATIENT
  Age: 79 Year
  Sex: Female
  Weight: 74 kg

DRUGS (8)
  1. IXPRIM (BINEDALINE HYDROCHLORIDE) [Suspect]
     Active Substance: BINEDALINE HYDROCHLORIDE
     Indication: PAIN
     Dosage: UNK
     Route: 048
     Dates: start: 20150428, end: 20150504
  2. OMEPRAZOLE. [Suspect]
     Active Substance: OMEPRAZOLE
     Dosage: 20 MG, QD
     Route: 048
  3. PREVISCAN [Suspect]
     Active Substance: FLUINDIONE
     Indication: ATRIAL FIBRILLATION
  4. CELECTOL [Suspect]
     Active Substance: CELIPROLOL HYDROCHLORIDE
     Indication: HYPERTENSION
     Dosage: UNK
     Route: 048
  5. PRAVASTATIN SODIUM. [Suspect]
     Active Substance: PRAVASTATIN SODIUM
     Dosage: 20 MG, QD
     Route: 048
  6. PREVISCAN [Suspect]
     Active Substance: FLUINDIONE
     Indication: ARRHYTHMIA
     Dosage: 1 DF, QD
     Route: 048
     Dates: start: 20140501, end: 20150505
  7. MODURETIC 5-50 [Suspect]
     Active Substance: AMILORIDE HYDROCHLORIDE\HYDROCHLOROTHIAZIDE
     Indication: HYPERTENSION
     Dosage: UNK
     Route: 048
     Dates: end: 20150505
  8. LINDEN [Concomitant]
     Active Substance: TILIA AMERICANA POLLEN
     Dosage: 1 DF, QD
     Route: 048
     Dates: end: 20150501

REACTIONS (1)
  - Thrombocytopenia [Recovered/Resolved]

NARRATIVE: CASE EVENT DATE: 20150505
